FAERS Safety Report 13780752 (Version 1)
Quarter: 2017Q3

REPORT INFORMATION
  Report Type: Spontaneous
  Country: US (occurrence: US)
  Receive Date: 20170721
  Receipt Date: 20170721
  Transmission Date: 20171127
  Serious: Yes (Disabling)
  Sender: FDA-Public Use
  Company Number: None

PATIENT
  Age: 69 Year
  Sex: Male
  Weight: 101.2 kg

DRUGS (5)
  1. INVOKANA [Concomitant]
     Active Substance: CANAGLIFLOZIN
  2. ENTERIC COATED ASPIRIN [Concomitant]
     Active Substance: ASPIRIN
  3. CIPROFLOXACIN HCL [Suspect]
     Active Substance: CIPROFLOXACIN HYDROCHLORIDE
     Indication: DIARRHOEA
     Dosage: ?          OTHER STRENGTH:MG;?
     Route: 048
     Dates: start: 20170630, end: 20170702
  4. METFORMIN [Concomitant]
     Active Substance: METFORMIN HYDROCHLORIDE
  5. SIMVASTATIN. [Concomitant]
     Active Substance: SIMVASTATIN

REACTIONS (10)
  - Myalgia [None]
  - Muscle atrophy [None]
  - Pain in extremity [None]
  - Tendon pain [None]
  - Arthralgia [None]
  - Gait inability [None]
  - Peripheral swelling [None]
  - Rheumatoid arthritis [None]
  - Muscular weakness [None]
  - Arthropathy [None]

NARRATIVE: CASE EVENT DATE: 20170703
